FAERS Safety Report 20373088 (Version 1)
Quarter: 2022Q1

REPORT INFORMATION
  Report Type: Spontaneous
  Country: US (occurrence: US)
  Receive Date: 20220125
  Receipt Date: 20220125
  Transmission Date: 20220423
  Serious: Yes (Other)
  Sender: FDA-Public Use
  Company Number: US-MLMSERVICE-20220107-3305168-1

PATIENT
  Age: 81 Year
  Sex: Female

DRUGS (4)
  1. CYCLOPHOSPHAMIDE [Suspect]
     Active Substance: CYCLOPHOSPHAMIDE
     Indication: Waldenstrom^s macroglobulinaemia
     Dosage: 1800 MILLIGRAM/SQ. METER 6 CYCLE (300 MG/M2 EVERY 21 DAYS)
     Route: 042
  2. DEXAMETHASONE [Suspect]
     Active Substance: DEXAMETHASONE
     Indication: Waldenstrom^s macroglobulinaemia
     Dosage: 120 MILLIGRAM 6 CYCLE (20 MG EVERY 21 DAYS)
     Route: 042
  3. DENOSUMAB [Concomitant]
     Active Substance: DENOSUMAB
     Indication: Osteoporosis
     Dosage: UNK (6 MONTH)
     Route: 065
  4. RITUXIMAB [Suspect]
     Active Substance: RITUXIMAB
     Indication: Waldenstrom^s macroglobulinaemia
     Dosage: 2250 MILLIGRAM/SQ. METER 6 CYCLE (375 MG/M2 EVERY 21 DAYS)
     Route: 042

REACTIONS (4)
  - Urinary tract infection [Unknown]
  - Neutropenia [Unknown]
  - Oral herpes [Unknown]
  - Anaemia [Unknown]
